FAERS Safety Report 4737438-9 (Version None)
Quarter: 2005Q3

REPORT INFORMATION
  Report Type: 
  Country: None (occurrence: None)
  Receive Date: 20050803
  Receipt Date: 20050714
  Transmission Date: 20060218
  Serious: Yes (Other)
  Sender: FDA-Public Use
  Company Number: DE_050716423

PATIENT
  Age: 38 Year
  Sex: Female
  Weight: 61 kg

DRUGS (2)
  1. CYMBALTA [Suspect]
     Indication: DEPRESSION
     Dosage: 60 MG DAY
     Dates: start: 20050621, end: 20050623
  2. CYMBALTA [Suspect]
     Indication: PAIN
     Dosage: 60 MG DAY
     Dates: start: 20050621, end: 20050623

REACTIONS (1)
  - TRISMUS [None]
